FAERS Safety Report 8781498 (Version 2)
Quarter: 2013Q4

REPORT INFORMATION
  Report Type: Spontaneous
  Country: US (occurrence: US)
  Receive Date: 20120913
  Receipt Date: 20131101
  Transmission Date: 20140711
  Serious: No
  Sender: FDA-Public Use
  Company Number: US-009507513-1209USA002880

PATIENT
  Sex: Female

DRUGS (1)
  1. DESOGEN [Suspect]
     Indication: CONTRACEPTION
     Route: 048

REACTIONS (1)
  - Metrorrhagia [Unknown]
